FAERS Safety Report 5079184-0 (Version None)
Quarter: 2006Q3

REPORT INFORMATION
  Report Type: 
  Country: None (occurrence: None)
  Receive Date: 20060814
  Receipt Date: 20060804
  Transmission Date: 20061208
  Serious: Yes (Other)
  Sender: FDA-Public Use
  Company Number: FR-GLAXOSMITHKLINE-B0433822A

PATIENT
  Age: 41 Year
  Sex: Male

DRUGS (3)
  1. IMIJECT [Suspect]
     Indication: CLUSTER HEADACHE
     Dosage: 6MG SEE DOSAGE TEXT
     Route: 058
  2. ZOMIG [Concomitant]
     Indication: MIGRAINE
     Dosage: 2.5MG AS REQUIRED
     Route: 048
  3. ISOPTIN [Concomitant]
     Route: 048
     Dates: start: 20040101

REACTIONS (3)
  - MALAISE [None]
  - MYOCARDIAL INFARCTION [None]
  - PAIN IN EXTREMITY [None]
